FAERS Safety Report 16564832 (Version 2)
Quarter: 2019Q3

REPORT INFORMATION
  Report Type: Spontaneous
  Country: BR (occurrence: BR)
  Receive Date: 20190712
  Receipt Date: 20190723
  Transmission Date: 20191004
  Serious: Yes (Other)
  Sender: FDA-Public Use
  Company Number: BR-SA-2019SA186944

PATIENT
  Sex: Male

DRUGS (8)
  1. APIXABAN [Concomitant]
     Active Substance: APIXABAN
     Dosage: 1 DF, QD
  2. EXODUS [ESCITALOPRAM OXALATE] [Concomitant]
     Dosage: 10 DROPS ON THE JUICE OR DIRECTLY ON THE MOUTH AT 10:30 AM
  3. DIOVAN [Concomitant]
     Active Substance: VALSARTAN
     Dosage: 2 DF, QD
  4. QUETIAPINE. [Concomitant]
     Active Substance: QUETIAPINE
     Dosage: 2 DF, HS
  5. APIDRA [Suspect]
     Active Substance: INSULIN GLULISINE
     Indication: DIABETES MELLITUS
     Dosage: 5 IU IF THE GLYCOSE WAS ABOVE 120 AFTER BREAKFAST (7:30 AM) AND AT 2PM
     Route: 065
     Dates: start: 2009
  6. GLAUB [Concomitant]
     Active Substance: BRIMONIDINE TARTRATE
     Dosage: 1 DROP IN EACH EYE AT 7PM
  7. LANTUS [Suspect]
     Active Substance: INSULIN GLARGINE
     Indication: DIABETES MELLITUS
     Dosage: 20 IU, ONE TO TWO TIMES A DAY
     Route: 065
     Dates: start: 2009
  8. SIMVASTATIN. [Concomitant]
     Active Substance: SIMVASTATIN
     Dosage: 1 DF, QD

REACTIONS (13)
  - Infarction [Recovered/Resolved with Sequelae]
  - Aggression [Not Recovered/Not Resolved]
  - Cardiac disorder [Unknown]
  - Hypertension [Unknown]
  - Multiple use of single-use product [Unknown]
  - Blister [Recovered/Resolved]
  - Inappropriate schedule of product administration [Unknown]
  - Bradycardia [Unknown]
  - Cerebrovascular accident [Recovered/Resolved with Sequelae]
  - Dementia [Recovered/Resolved with Sequelae]
  - Autoimmune disorder [Unknown]
  - Unevaluable event [Unknown]
  - Pemphigoid [Recovered/Resolved]

NARRATIVE: CASE EVENT DATE: 2013
